FAERS Safety Report 6794209-X (Version None)
Quarter: 2010Q2

REPORT INFORMATION
  Report Type: 
  Country: None (occurrence: None)
  Receive Date: 20100625
  Receipt Date: 20100621
  Transmission Date: 20101027
  Serious: Yes (Hospitalization)
  Sender: FDA-Public Use
  Company Number: US-BIOGENIDEC-2010BI020444

PATIENT
  Age: 59 Year
  Sex: Female

DRUGS (23)
  1. TYSABRI [Suspect]
     Indication: MULTIPLE SCLEROSIS
     Route: 042
     Dates: start: 20070125
  2. LEVOTHYROXINE [Concomitant]
     Indication: BLOOD THYROID STIMULATING HORMONE DECREASED
     Route: 048
  3. PERCOCET [Concomitant]
     Route: 048
  4. TRAMADOL HCL [Concomitant]
     Route: 048
  5. TIZANIDINE HCL [Concomitant]
     Route: 048
  6. LORATADINE [Concomitant]
     Route: 048
  7. HYDROXYCHLOROQUINE SULFATE [Concomitant]
     Route: 048
  8. FLUNISOLIDE [Concomitant]
     Route: 055
  9. LISINOPRIL [Concomitant]
     Route: 048
  10. CLOPIDOGREL [Concomitant]
     Route: 048
  11. ZOLPIDEM TARTRATE [Concomitant]
     Route: 048
  12. LORAZEPAM [Concomitant]
     Route: 048
  13. OXYCODONE HCL [Concomitant]
     Route: 048
  14. INSULIN [Concomitant]
     Indication: DIABETES MELLITUS
     Route: 058
  15. LISPRO INSULIN [Concomitant]
     Indication: DIABETES MELLITUS
  16. OMEPRAZOLE [Concomitant]
     Route: 048
  17. M.V.I. [Concomitant]
  18. AMLODIPINE BESYLATE [Concomitant]
     Route: 048
  19. ACETAMINOPHEN [Concomitant]
     Route: 048
  20. EPOETIN ALFA  10000 UNITS Q 14 DAYS, [Concomitant]
     Route: 058
  21. ALBUTEROL [Concomitant]
  22. CALCIUM CARBONATE [Concomitant]
     Route: 048
  23. ERGOCALCIFEROL [Concomitant]
     Route: 048

REACTIONS (5)
  - ATRIAL FIBRILLATION [None]
  - BLOOD THYROID STIMULATING HORMONE DECREASED [None]
  - DEHYDRATION [None]
  - HEPATIC ENZYME INCREASED [None]
  - RENAL FAILURE [None]
